FAERS Safety Report 9159429 (Version 1)
Quarter: 2013Q1

REPORT INFORMATION
  Report Type: Spontaneous
  Country: US (occurrence: US)
  Receive Date: 20130313
  Receipt Date: 20130313
  Transmission Date: 20140127
  Serious: Yes (Death, Hospitalization, Other)
  Sender: FDA-Public Use
  Company Number: PHEH2005US014213

PATIENT
  Age: 78 Year
  Sex: Male
  Weight: 85.71 kg

DRUGS (44)
  1. ZOMETA [Suspect]
     Indication: PROSTATE CANCER METASTATIC
     Dosage: UNK UKN, QMO
     Dates: start: 20020828
  2. ZOMETA [Suspect]
     Dosage: 4 MG,
     Route: 042
     Dates: start: 200211
  3. ZOMETA [Suspect]
     Dates: end: 20030807
  4. ZOMETA [Suspect]
     Dates: end: 20040916
  5. ZOMETA [Suspect]
     Dates: end: 20111110
  6. LIDOCAINE [Concomitant]
  7. VITAMINS NOS [Concomitant]
  8. CHEMOTHERAPEUTICS,OTHER [Concomitant]
  9. PREDNISONE [Concomitant]
     Indication: NEOPLASM MALIGNANT
     Dosage: 5 MG, BID
     Dates: start: 20041021
  10. CASODEX [Concomitant]
  11. FIBERCON [Concomitant]
     Dosage: UNK UKN, UNK
  12. PERI-COLACE [Concomitant]
  13. VICODIN [Concomitant]
  14. DARVOCET-N [Concomitant]
  15. TYLENOL [Concomitant]
  16. VALIUM [Concomitant]
  17. NIFEREX FORTE [Concomitant]
     Indication: MINERAL SUPPLEMENTATION
     Dosage: 150 UKN, BID
  18. ZINC OXIDE [Concomitant]
     Indication: ECZEMA
  19. DALMANE [Concomitant]
     Indication: SLEEP DISORDER
  20. INFED [Concomitant]
  21. AMBIEN [Concomitant]
     Indication: SLEEP DISORDER
  22. ERYTHROPOIETIN [Concomitant]
  23. LEXAPRO [Concomitant]
     Dosage: UNK UKN, UNK
     Dates: end: 200504
  24. ZOCOR ^MERCK^ [Concomitant]
     Dosage: UNK UKN, UNK
     Dates: end: 200502
  25. DURAGESIC [Concomitant]
  26. PERCOCET [Concomitant]
     Indication: PAIN
     Dosage: EVERY 4-6 HRS
  27. ATENOLOL [Concomitant]
  28. CALCIUM [Concomitant]
  29. ARANESP [Concomitant]
  30. NAPROSYN [Concomitant]
  31. ASPIRIN [Concomitant]
  32. FLEXERIL [Concomitant]
  33. DULCOLAX [Concomitant]
  34. NITROGLYCERIN ^A.L.^ [Concomitant]
     Indication: CHEST PAIN
     Dosage: UNK UKN, PRN
  35. HEPARIN [Concomitant]
     Dosage: UNK UKN, UNK
     Route: 042
  36. PROMIT [Concomitant]
  37. VERSED [Concomitant]
  38. PERSANTIN [Concomitant]
     Dosage: 75 MG, TID
  39. ECOTRIN [Concomitant]
  40. ZANTAC [Concomitant]
  41. NITROSTAT [Concomitant]
  42. LUPRON [Concomitant]
  43. STRONTIUM (89 SR) CHLORIDE [Concomitant]
     Indication: PROSTATE CANCER
     Dosage: UNK UKN, UNK
     Dates: end: 20030801
  44. RADIO-THERAPY [Concomitant]
     Dosage: UNK UKN, UNK
     Dates: start: 20050620, end: 20050711

REACTIONS (94)
  - Malignant neoplasm progression [Fatal]
  - Osteonecrosis of jaw [Not Recovered/Not Resolved]
  - Abscess [Recovering/Resolving]
  - Bone disorder [Unknown]
  - Wound [Unknown]
  - Impaired healing [Unknown]
  - Oedema mouth [Unknown]
  - Swelling face [Unknown]
  - Eating disorder [Unknown]
  - Weight decreased [Unknown]
  - Anaemia [Unknown]
  - Pain [Unknown]
  - Biopsy [Recovering/Resolving]
  - Swelling [Unknown]
  - Oral pain [Unknown]
  - Deformity [Unknown]
  - Emotional distress [Unknown]
  - Anxiety [Unknown]
  - General physical health deterioration [Unknown]
  - Decreased interest [Unknown]
  - Life expectancy shortened [Unknown]
  - Infection [Unknown]
  - Pain in jaw [Unknown]
  - Gingival swelling [Unknown]
  - Gingival erythema [Unknown]
  - Gingival pain [Unknown]
  - Radiation injury [Unknown]
  - Metastases to bone [Unknown]
  - Lethargy [Fatal]
  - Cachexia [Fatal]
  - Blindness [Unknown]
  - Mass [Unknown]
  - Depression [Unknown]
  - Atrioventricular block first degree [Unknown]
  - Sinus bradycardia [Unknown]
  - Electrocardiogram abnormal [Unknown]
  - Computerised tomogram abnormal [Unknown]
  - Deafness [Unknown]
  - Incontinence [Unknown]
  - Cardiomegaly [Unknown]
  - Memory impairment [Unknown]
  - Nuclear magnetic resonance imaging [Unknown]
  - Osteomyelitis [Unknown]
  - Spinal disorder [Unknown]
  - Cardiac murmur [Unknown]
  - Neck pain [Unknown]
  - Blood cholesterol increased [Unknown]
  - Bronchitis [Unknown]
  - Back pain [Unknown]
  - Pain in extremity [Unknown]
  - Headache [Unknown]
  - Fatigue [Unknown]
  - Dyspnoea [Unknown]
  - Constipation [Unknown]
  - Sleep disorder [Unknown]
  - Dermatitis [Unknown]
  - Full blood count abnormal [Unknown]
  - Blood iron decreased [Unknown]
  - Eczema [Unknown]
  - Nervousness [Unknown]
  - Myalgia [Unknown]
  - Gait disturbance [Unknown]
  - Blood glucose increased [Unknown]
  - Diplopia [Unknown]
  - Eye swelling [Unknown]
  - Vision blurred [Unknown]
  - Osteoarthritis [Unknown]
  - Faecaloma [Unknown]
  - Periodontitis [Unknown]
  - Dehydration [Unknown]
  - Malnutrition [Unknown]
  - Oropharyngeal pain [Unknown]
  - Lymphadenopathy [Unknown]
  - Dizziness [Unknown]
  - Cerebral atrophy [Unknown]
  - Stress urinary incontinence [Unknown]
  - Urethral dilatation [Unknown]
  - Urethral fistula [Unknown]
  - Erectile dysfunction [Unknown]
  - Mean cell volume decreased [Unknown]
  - Hypertension [Unknown]
  - White blood cell count decreased [Unknown]
  - Metastases to lung [Unknown]
  - Middle ear effusion [Recovered/Resolved]
  - Metastases to spine [Unknown]
  - Eustachian tube dysfunction [Unknown]
  - Metastases to meninges [Unknown]
  - Urinary retention [Unknown]
  - Cellulitis [Unknown]
  - Delirium [Unknown]
  - Urinary tract infection [Unknown]
  - Osteosclerosis [Unknown]
  - Nodule [Unknown]
  - Exostosis [Unknown]
